FAERS Safety Report 5969356-2 (Version None)
Quarter: 2008Q4

REPORT INFORMATION
  Report Type: 
  Country: None (occurrence: None)
  Receive Date: 20081126
  Receipt Date: 20081120
  Transmission Date: 20090506
  Serious: Yes (Hospitalization)
  Sender: FDA-Public Use
  Company Number: US-GENENTECH-272188

PATIENT
  Sex: Male

DRUGS (2)
  1. BEVACIZUMAB [Suspect]
     Indication: NEUROENDOCRINE CARCINOMA
     Dosage: 15 MG/KG, Q21D
     Route: 042
     Dates: start: 20080612
  2. RAD001 [Concomitant]
     Indication: NEUROENDOCRINE CARCINOMA
     Dosage: 10 MG, QDX21
     Route: 048
     Dates: start: 20080702

REACTIONS (1)
  - ABDOMINAL DISTENSION [None]
